FAERS Safety Report 8043565-3 (Version None)
Quarter: 2012Q1

REPORT INFORMATION
  Report Type: 
  Country: None (occurrence: None)
  Receive Date: 20120112
  Receipt Date: 20111208
  Transmission Date: 20120608
  Serious: Yes (Other)
  Sender: FDA-Public Use
  Company Number: PHHY2011NL115150

PATIENT
  Sex: Male

DRUGS (2)
  1. ZOMETA [Suspect]
     Indication: PROSTATE CANCER METASTATIC
     Dosage: 4 MG, PER 5 ML ONCE PER 28 DAYS
     Dates: start: 20110721
  2. ZOMETA [Suspect]
     Dosage: 4 MG, PER 5 ML ONCE PER 28 DAYS
     Dates: start: 20111208

REACTIONS (1)
  - GENERAL PHYSICAL HEALTH DETERIORATION [None]
